FAERS Safety Report 13022395 (Version 2)
Quarter: 2016Q4

REPORT INFORMATION
  Report Type: Report from Study
  Country: DE (occurrence: DE)
  Receive Date: 20161213
  Receipt Date: 20161223
  Transmission Date: 20170207
  Serious: Yes (Death, Hospitalization, Other)
  Sender: FDA-Public Use
  Company Number: PHHY2016DE160063

PATIENT
  Sex: Male
  Weight: 82 kg

DRUGS (11)
  1. TAMSULOSIN [Concomitant]
     Active Substance: TAMSULOSIN
     Indication: BENIGN PROSTATIC HYPERPLASIA
     Dosage: 0.4 MG (1 DF), QD
     Route: 048
  2. FINASTERIDE. [Concomitant]
     Active Substance: FINASTERIDE
     Indication: BENIGN PROSTATIC HYPERPLASIA
     Dosage: 5 MG (1 DF), QD
     Route: 048
  3. METFORMIN [Concomitant]
     Active Substance: METFORMIN HYDROCHLORIDE
     Indication: PRODUCT USED FOR UNKNOWN INDICATION
     Dosage: 425 MG, BID
     Route: 065
     Dates: start: 201606
  4. AMLODIPINE [Concomitant]
     Active Substance: AMLODIPINE BESYLATE
     Indication: HYPERTENSION
     Dosage: 5 MG (2 DF), BID
     Route: 048
     Dates: start: 20160301
  5. PANTOZOL [Concomitant]
     Active Substance: PANTOPRAZOLE SODIUM
     Indication: PRODUCT USED FOR UNKNOWN INDICATION
     Dosage: 40 MG (1 DF), QD
     Route: 048
  6. AFINITOR [Suspect]
     Active Substance: EVEROLIMUS
     Indication: METASTATIC RENAL CELL CARCINOMA
     Dosage: 10 MG (1 DF), QD
     Route: 048
     Dates: start: 20160504, end: 20160614
  7. RAMIPRIL. [Concomitant]
     Active Substance: RAMIPRIL
     Indication: HYPERTENSION
     Dosage: 10 MG (1 DF), QD
     Route: 048
  8. AFINITOR [Suspect]
     Active Substance: EVEROLIMUS
     Dosage: 10 MG, UNK
     Route: 048
     Dates: start: 20160628
  9. TRAMADOL. [Concomitant]
     Active Substance: TRAMADOL
     Indication: TOOTHACHE
     Dosage: 100 MG, PRN
     Route: 065
  10. DICLOFENAC [Concomitant]
     Active Substance: DICLOFENAC
     Indication: TOOTHACHE
     Dosage: 75 MG, PRN
     Route: 065
  11. TOREM [Concomitant]
     Active Substance: TORSEMIDE
     Indication: PRODUCT USED FOR UNKNOWN INDICATION
     Dosage: 10 MG, QD
     Route: 065
     Dates: start: 20160531

REACTIONS (26)
  - Infectious pleural effusion [Unknown]
  - Tumour associated fever [Recovered/Resolved]
  - Erosive duodenitis [Unknown]
  - Metastases to soft tissue [Unknown]
  - General physical health deterioration [Unknown]
  - Activated partial thromboplastin time prolonged [Unknown]
  - Metastatic renal cell carcinoma [Fatal]
  - Dyspnoea exertional [Unknown]
  - Oral pain [Unknown]
  - Gastrointestinal mucosa hyperaemia [Unknown]
  - Malignant neoplasm progression [Fatal]
  - Atelectasis [Unknown]
  - Throat lesion [Unknown]
  - Gastrooesophageal reflux disease [Unknown]
  - International normalised ratio increased [Unknown]
  - Metastases to bone [Unknown]
  - Platelet count increased [Unknown]
  - Fatigue [Unknown]
  - Blister [Unknown]
  - Haemoglobin decreased [Unknown]
  - Glycogenic acanthosis [Unknown]
  - Fungal infection [Unknown]
  - Dyspnoea [Recovered/Resolved]
  - Inflammatory marker increased [Recovering/Resolving]
  - Gastric cyst [Unknown]
  - Herpes virus infection [Unknown]

NARRATIVE: CASE EVENT DATE: 201606
